FAERS Safety Report 8152268-6 (Version None)
Quarter: 2012Q1

REPORT INFORMATION
  Report Type: 
  Country: None (occurrence: None)
  Receive Date: 20120221
  Receipt Date: 20120213
  Transmission Date: 20120608
  Serious: Yes (Other)
  Sender: FDA-Public Use
  Company Number: US-BAYER-2011-036247

PATIENT
  Age: 30 Year
  Sex: Female
  Weight: 54 kg

DRUGS (4)
  1. RELPAX [Concomitant]
     Indication: MIGRAINE
     Dosage: 40 MG, PRN
     Dates: start: 20060101
  2. TOPAMAX [Concomitant]
     Indication: HEADACHE
     Dosage: UNK
     Dates: start: 20050101
  3. TOPAMAX [Concomitant]
     Indication: MIGRAINE
  4. YASMIN [Suspect]
     Indication: CONTRACEPTION
     Dosage: UNK
     Dates: start: 20030812, end: 20070501

REACTIONS (15)
  - GALLBLADDER INJURY [None]
  - GASTROINTESTINAL DISORDER [None]
  - HEADACHE [None]
  - ABDOMINAL PAIN UPPER [None]
  - PAIN [None]
  - ANXIETY [None]
  - GASTRIC DISORDER [None]
  - FATIGUE [None]
  - DYSPEPSIA [None]
  - CHOLELITHIASIS [None]
  - CHOLECYSTITIS CHRONIC [None]
  - MULTIPLE INJURIES [None]
  - FLAT AFFECT [None]
  - DEPRESSION [None]
  - EMOTIONAL DISTRESS [None]
